FAERS Safety Report 9469544 (Version 1)
Quarter: 2013Q3

REPORT INFORMATION
  Report Type: Spontaneous
  Country: SE (occurrence: SE)
  Receive Date: 20130822
  Receipt Date: 20130822
  Transmission Date: 20140515
  Serious: Yes (Death, Other)
  Sender: FDA-Public Use
  Company Number: SE-009507513-1308SWE006436

PATIENT
  Age: 90 Year
  Sex: Female

DRUGS (7)
  1. SIMVASTATIN [Suspect]
     Indication: HYPERLIPIDAEMIA
     Dosage: 40MGD MG D
     Route: 048
     Dates: end: 20120323
  2. SIMVASTATIN [Suspect]
     Indication: HYPERTRIGLYCERIDAEMIA
  3. RAMIPRIL [Concomitant]
  4. FURIX [Concomitant]
  5. IMDUR [Concomitant]
  6. GLYTRIN [Concomitant]
  7. ATACAND [Concomitant]

REACTIONS (2)
  - Rhabdomyolysis [Fatal]
  - Renal failure acute [Fatal]
